FAERS Safety Report 6491670-5 (Version None)
Quarter: 2009Q4

REPORT INFORMATION
  Report Type: 
  Country: None (occurrence: None)
  Receive Date: 20091211
  Receipt Date: 20091204
  Transmission Date: 20100525
  Serious: Yes (Hospitalization)
  Sender: FDA-Public Use
  Company Number: IL-MERCK-0912ISR00010

PATIENT
  Age: 57 Year
  Sex: Male

DRUGS (1)
  1. JANUMET [Suspect]
     Route: 048

REACTIONS (2)
  - RASH [None]
  - TESTICULAR OEDEMA [None]
